FAERS Safety Report 7851239-4 (Version None)
Quarter: 2011Q3

REPORT INFORMATION
  Report Type: 
  Country: None (occurrence: None)
  Receive Date: 20110902
  Receipt Date: 20110629
  Transmission Date: 20111222
  Serious: Yes (Hospitalization)
  Sender: FDA-Public Use
  Company Number: 163-22393-11063979

PATIENT
  Age: 80 Year
  Sex: Male
  Weight: 78.0187 kg

DRUGS (1)
  1. ISTODAX [Suspect]
     Indication: T-CELL LYMPHOMA
     Dosage: IV
     Route: 042
     Dates: start: 20110611

REACTIONS (2)
  - PYREXIA [None]
  - SEPSIS [None]
